FAERS Safety Report 21457495 (Version 1)
Quarter: 2022Q4

REPORT INFORMATION
  Report Type: Spontaneous
  Country: CN (occurrence: CN)
  Receive Date: 20221014
  Receipt Date: 20221014
  Transmission Date: 20230112
  Serious: Yes (Other)
  Sender: FDA-Public Use
  Company Number: CN-MLMSERVICE-20220930-3832156-1

PATIENT
  Age: 58 Year
  Sex: Male

DRUGS (4)
  1. CISPLATIN [Suspect]
     Active Substance: CISPLATIN
     Indication: Metastases to neck
     Dates: start: 2021, end: 2021
  2. DOCETAXEL [Concomitant]
     Active Substance: DOCETAXEL
     Indication: Metastases to neck
     Dates: start: 2021, end: 2021
  3. DOCETAXEL [Concomitant]
     Active Substance: DOCETAXEL
     Indication: Hormone-refractory prostate cancer
     Dates: start: 2021, end: 2021
  4. CISPLATIN [Suspect]
     Active Substance: CISPLATIN
     Indication: Metastases to thorax
     Dates: start: 2021, end: 2021

REACTIONS (1)
  - Oedema [Unknown]

NARRATIVE: CASE EVENT DATE: 20210101
